FAERS Safety Report 8675542 (Version 5)
Quarter: 2013Q4

REPORT INFORMATION
  Report Type: Spontaneous
  Country: US (occurrence: US)
  Receive Date: 20120720
  Receipt Date: 20131031
  Transmission Date: 20140711
  Serious: Yes (Death, Life-Threatening, Disabling, Other)
  Sender: FDA-Public Use
  Company Number: US-009507513-1207USA006995

PATIENT
  Age: 80 Year
  Sex: Male

DRUGS (1)
  1. JANUVIA [Suspect]
     Indication: DIABETES MELLITUS
     Dosage: 100 MG, QD
     Route: 048
     Dates: start: 200710

REACTIONS (1)
  - Pancreatic carcinoma [Fatal]
